FAERS Safety Report 4518879-1 (Version None)
Quarter: 2004Q4

REPORT INFORMATION
  Report Type: 
  Country: None (occurrence: None)
  Receive Date: 20041201
  Receipt Date: 20041116
  Transmission Date: 20050328
  Serious: Yes (Hospitalization)
  Sender: FDA-Public Use
  Company Number: PHEH2004US11264

PATIENT
  Age: 87 Year
  Sex: Female

DRUGS (13)
  1. VISUDYNE [Suspect]
     Dates: start: 20041020, end: 20041020
  2. VISUDYNE [Suspect]
     Dates: start: 20040714, end: 20040714
  3. ARICEPT [Concomitant]
  4. LIPITOR [Concomitant]
  5. IMDUR [Concomitant]
  6. NITROGLYCERIN [Concomitant]
  7. ALTACE [Concomitant]
  8. XANAX [Concomitant]
  9. DARVOCET [Concomitant]
  10. TENORMIN [Concomitant]
  11. PEPCID [Concomitant]
  12. TYLENOL W/ CODEINE NO. 3 [Concomitant]
  13. ASPIRIN [Concomitant]

REACTIONS (11)
  - ANGINA UNSTABLE [None]
  - CARDIOMEGALY [None]
  - CARDIOMYOPATHY [None]
  - CHEST PAIN [None]
  - CIRCULATORY COLLAPSE [None]
  - FATIGUE [None]
  - HYPERHIDROSIS [None]
  - INFUSION RELATED REACTION [None]
  - MYOCARDIAL INFARCTION [None]
  - PALLOR [None]
  - SYNCOPE [None]
